FAERS Safety Report 5086367-2 (Version None)
Quarter: 2006Q3

REPORT INFORMATION
  Report Type: 
  Country: None (occurrence: None)
  Receive Date: 20060703
  Receipt Date: 20060327
  Transmission Date: 20061208
  Serious: No
  Sender: FDA-Public Use
  Company Number: 2006S1002764

PATIENT
  Age: 56 Year
  Sex: Female
  Weight: 81.62 kg

DRUGS (9)
  1. CLOZAPINE [Suspect]
     Indication: SCHIZOAFFECTIVE DISORDER
     Dosage: 300 MG;HS;ORAL
     Route: 048
     Dates: start: 20060224
  2. ATORVASTATIN [Concomitant]
  3. BENZTROPINE MESYLATE [Concomitant]
  4. HALOPERIDOL [Concomitant]
  5. LORAZEPAM [Concomitant]
  6. VALPROIC ACID [Concomitant]
  7. GEMFIBROZIL [Concomitant]
  8. TOPIRAMATE [Concomitant]
  9. METOPROLOL SUCCINATE [Concomitant]

REACTIONS (1)
  - GRANULOCYTOPENIA [None]
